FAERS Safety Report 9134856 (Version 1)
Quarter: 2013Q1

REPORT INFORMATION
  Report Type: Spontaneous
  Country: US (occurrence: US)
  Receive Date: 20130304
  Receipt Date: 20130304
  Transmission Date: 20140127
  Serious: Yes (Other)
  Sender: FDA-Public Use
  Company Number: US-ENDO PHARMACEUTICALS INC.-ENDC20120031

PATIENT
  Sex: Male

DRUGS (2)
  1. ENDOCET [Suspect]
     Indication: KNEE OPERATION
     Dosage: 50MG/3250MG
     Route: 048
     Dates: start: 2010, end: 2012
  2. ENDOCET [Suspect]
     Indication: PAIN

REACTIONS (5)
  - Drug diversion [Unknown]
  - Liver disorder [Unknown]
  - Muscle spasms [Unknown]
  - Abdominal pain [Unknown]
  - Pruritus [Unknown]
